FAERS Safety Report 5305518-5 (Version None)
Quarter: 2007Q2

REPORT INFORMATION
  Report Type: 
  Country: None (occurrence: None)
  Receive Date: 20070424
  Receipt Date: 20060322
  Transmission Date: 20071010
  Serious: No
  Sender: FDA-Public Use
  Company Number: US-GLAXOSMITHKLINE-A0597771A

PATIENT
  Sex: Male

DRUGS (3)
  1. FLOVENT [Suspect]
     Dates: start: 20040501
  2. AZMACORT [Suspect]
     Dates: start: 20050401, end: 20050501
  3. BECONASE [Suspect]
     Dates: start: 20050901, end: 20051001

REACTIONS (6)
  - COUGH [None]
  - HYPERSENSITIVITY [None]
  - PRURITUS [None]
  - RASH [None]
  - SWELLING [None]
  - THROAT IRRITATION [None]
